FAERS Safety Report 4987794-1 (Version None)
Quarter: 2006Q2

REPORT INFORMATION
  Report Type: 
  Country: None (occurrence: None)
  Receive Date: 20060426
  Receipt Date: 20060410
  Transmission Date: 20061013
  Serious: Yes (Hospitalization)
  Sender: FDA-Public Use
  Company Number: ES200604001626

PATIENT
  Age: 73 Year
  Sex: Female

DRUGS (2)
  1. FORTEO [Suspect]
     Indication: OSTEOPOROSIS
     Dosage: 20 UG, SUBCUTANEOUS
     Route: 058
     Dates: start: 20050318, end: 20060323
  2. FORTEO [Concomitant]

REACTIONS (4)
  - ABDOMINAL PAIN [None]
  - COLON CANCER [None]
  - TREATMENT NONCOMPLIANCE [None]
  - VOMITING [None]
